FAERS Safety Report 12909717 (Version 1)
Quarter: 2016Q4

REPORT INFORMATION
  Report Type: Other
  Country: CA (occurrence: CA)
  Receive Date: 20161104
  Receipt Date: 20161104
  Transmission Date: 20170207
  Serious: Yes (Other)
  Sender: FDA-Public Use
  Company Number: CA-APOTEX-2016AP013652

PATIENT

DRUGS (9)
  1. APO-LAMOTRIGINE [Suspect]
     Active Substance: LAMOTRIGINE
     Indication: SCHIZOPHRENIA
     Dosage: UNK
     Route: 065
  2. APO-RISPERIDONE [Suspect]
     Active Substance: RISPERIDONE
     Indication: SCHIZOPHRENIA
     Dosage: 25 MG, UNK
     Route: 030
  3. BENZATROPINE [Suspect]
     Active Substance: BENZTROPINE
     Indication: SCHIZOPHRENIA
     Route: 065
  4. SODIUM VALPROATE [Suspect]
     Active Substance: VALPROATE SODIUM
     Indication: SCHIZOPHRENIA
     Route: 065
  5. APO-LOXAPINE [Suspect]
     Active Substance: LOXAPINE SUCCINATE
     Indication: SCHIZOPHRENIA
     Dosage: 50 MG, QD
     Route: 065
  6. ARIPIPRAZOLE. [Suspect]
     Active Substance: ARIPIPRAZOLE
     Indication: SCHIZOPHRENIA
     Route: 065
  7. APO-LITHIUM CARBONATE [Suspect]
     Active Substance: LITHIUM CARBONATE
     Indication: SCHIZOPHRENIA
     Route: 065
  8. APO-OLANZAPINE [Suspect]
     Active Substance: OLANZAPINE
     Indication: SCHIZOPHRENIA
     Route: 065
  9. APO-QUETIAPINE [Suspect]
     Active Substance: QUETIAPINE
     Indication: SCHIZOPHRENIA
     Route: 065

REACTIONS (1)
  - Oculogyric crisis [Recovered/Resolved]
